FAERS Safety Report 6861758-5 (Version None)
Quarter: 2010Q3

REPORT INFORMATION
  Report Type: 
  Country: None (occurrence: None)
  Receive Date: 20100721
  Receipt Date: 20100713
  Transmission Date: 20110219
  Serious: No
  Sender: FDA-Public Use
  Company Number: US-BIOGENIDEC-2010BI024135

PATIENT
  Sex: Female

DRUGS (3)
  1. TYSABRI [Suspect]
     Indication: MULTIPLE SCLEROSIS
     Route: 042
     Dates: start: 20080421, end: 20100126
  2. TYSABRI [Suspect]
     Route: 042
     Dates: start: 20100607
  3. STEROIDS [Concomitant]

REACTIONS (1)
  - INHIBITORY DRUG INTERACTION [None]
